FAERS Safety Report 23677874 (Version 1)
Quarter: 2024Q1

REPORT INFORMATION
  Report Type: Spontaneous
  Country: CN (occurrence: CN)
  Receive Date: 20240327
  Receipt Date: 20240327
  Transmission Date: 20240410
  Serious: Yes (Hospitalization)
  Sender: FDA-Public Use
  Company Number: CN-MYLANLABS-2024M1028035

PATIENT
  Age: 16 Year
  Sex: Female

DRUGS (12)
  1. SERTRALINE [Suspect]
     Active Substance: SERTRALINE HYDROCHLORIDE
     Indication: Post-traumatic stress disorder
     Dosage: 100 MILLIGRAM, QD
     Route: 065
     Dates: start: 20201029
  2. SERTRALINE [Suspect]
     Active Substance: SERTRALINE HYDROCHLORIDE
     Indication: Depression
  3. VENLAFAXINE [Suspect]
     Active Substance: VENLAFAXINE HYDROCHLORIDE
     Indication: Post-traumatic stress disorder
     Dosage: 225 MILLIGRAM, QD, EXTENDED-RELEASE
     Route: 065
     Dates: start: 20201029
  4. VENLAFAXINE [Suspect]
     Active Substance: VENLAFAXINE HYDROCHLORIDE
     Indication: Depression
  5. DIAZEPAM [Suspect]
     Active Substance: DIAZEPAM
     Indication: Post-traumatic stress disorder
     Dosage: 10 MILLIGRAM, QD
     Route: 065
     Dates: start: 20201029
  6. DIAZEPAM [Suspect]
     Active Substance: DIAZEPAM
     Indication: Depression
  7. LORAZEPAM [Suspect]
     Active Substance: LORAZEPAM
     Indication: Post-traumatic stress disorder
     Dosage: 0.5 MILLIGRAM, QD, EVERY NIGHT
     Route: 065
  8. LORAZEPAM [Suspect]
     Active Substance: LORAZEPAM
     Indication: Depression
     Dosage: 1 MILLIGRAM, QD, EVERY NIGHT
     Route: 065
     Dates: start: 20201119
  9. OLANZAPINE [Suspect]
     Active Substance: OLANZAPINE
     Indication: Post-traumatic stress disorder
     Dosage: 7.5 MILLIGRAM, QD, EVERY NIGHT
     Route: 065
     Dates: start: 20201029
  10. OLANZAPINE [Suspect]
     Active Substance: OLANZAPINE
     Indication: Depression
     Dosage: 10 MILLIGRAM, QD, EVERY NIGHT
     Route: 065
  11. BUPROPION [Concomitant]
     Active Substance: BUPROPION
     Indication: Post-traumatic stress disorder
     Dosage: 150 MILLIGRAM, QD, EXTENDED-RELEASE
     Route: 065
     Dates: start: 20201103, end: 20201108
  12. BUPROPION [Concomitant]
     Active Substance: BUPROPION
     Indication: Depression
     Dosage: 300 MILLIGRAM, QD, EXTENDED-RELEASE
     Route: 065
     Dates: start: 20201109, end: 20210727

REACTIONS (1)
  - Drug ineffective [Unknown]
